FAERS Safety Report 16785295 (Version 6)
Quarter: 2020Q2

REPORT INFORMATION
  Report Type: Spontaneous
  Country: PT (occurrence: PT)
  Receive Date: 20190909
  Receipt Date: 20200422
  Transmission Date: 20200713
  Serious: Yes (Other)
  Sender: FDA-Public Use
  Company Number: PHHY2019PT203360

PATIENT
  Sex: Female

DRUGS (13)
  1. DEFLAZACORT [Suspect]
     Active Substance: DEFLAZACORT
     Indication: JUVENILE IDIOPATHIC ARTHRITIS
     Dosage: 0.5 MG/KG
     Route: 048
     Dates: start: 2011
  2. ADALIMUMAB [Suspect]
     Active Substance: ADALIMUMAB
     Indication: JUVENILE IDIOPATHIC ARTHRITIS
     Dosage: 24 MG/M2, BIW
     Route: 058
     Dates: start: 2014
  3. METHOTREXATE. [Suspect]
     Active Substance: METHOTREXATE
     Dosage: UNK
     Route: 058
  4. BRIMONIDINE [Suspect]
     Active Substance: BRIMONIDINE TARTRATE
     Indication: INTRAOCULAR PRESSURE TEST
     Dosage: 2 MG/ML
     Route: 061
  5. LATANOPROST. [Suspect]
     Active Substance: LATANOPROST
     Indication: GLAUCOMA
     Dosage: 0.05 MG/ML, UNK
     Route: 061
     Dates: start: 2014
  6. ACETAZOLAMIDE. [Suspect]
     Active Substance: ACETAZOLAMIDE
     Indication: GLAUCOMA
     Dosage: 250 MG, UNK
     Route: 048
     Dates: start: 2014
  7. DEXAMETHASONE. [Suspect]
     Active Substance: DEXAMETHASONE
     Indication: PRODUCT USED FOR UNKNOWN INDICATION
     Dosage: UNK, BID TWICE DAILY EACH, IN BOTH EYES
     Route: 061
  8. IBUPROFEN. [Suspect]
     Active Substance: IBUPROFEN
     Indication: JUVENILE IDIOPATHIC ARTHRITIS
     Dosage: 30 MG/KG, UNK
     Route: 048
  9. TIMOLOL. [Suspect]
     Active Substance: TIMOLOL
     Indication: INTRAOCULAR PRESSURE INCREASED
     Dosage: 5 MG/ML (TWICE DAILY EACH, IN BOTH EYES)
     Route: 061
  10. BRINZOLAMIDE [Suspect]
     Active Substance: BRINZOLAMIDE
     Indication: INTRAOCULAR PRESSURE TEST
     Dosage: 10 MG/ML, UNK
     Route: 061
  11. ADALIMUMAB [Suspect]
     Active Substance: ADALIMUMAB
     Indication: PSORIASIS
  12. METHOTREXATE. [Suspect]
     Active Substance: METHOTREXATE
     Indication: JUVENILE IDIOPATHIC ARTHRITIS
     Dosage: 15 MG/M2, QW
     Route: 048
  13. TOCILIZUMAB. [Concomitant]
     Active Substance: TOCILIZUMAB
     Indication: PRODUCT USED FOR UNKNOWN INDICATION
     Dosage: 12 MG/KG/EVERY TWO WEEKS
     Route: 042

REACTIONS (4)
  - Short stature [Unknown]
  - Drug ineffective [Unknown]
  - Cushing^s syndrome [Unknown]
  - Muscle atrophy [Unknown]
